FAERS Safety Report 21859957 (Version 3)
Quarter: 2023Q2

REPORT INFORMATION
  Report Type: Spontaneous
  Country: US (occurrence: US)
  Receive Date: 20230113
  Receipt Date: 20230410
  Transmission Date: 20230722
  Serious: Yes (Death, Other)
  Sender: FDA-Public Use
  Company Number: US-PFIZER INC-202300014271

PATIENT
  Age: 78 Year
  Sex: Male
  Weight: 68.027 kg

DRUGS (1)
  1. VYNDAMAX [Suspect]
     Active Substance: TAFAMIDIS
     Dosage: 61 MG, 1X/DAY
     Route: 048

REACTIONS (5)
  - Renal failure [Fatal]
  - Nephrolithiasis [Unknown]
  - Depression [Unknown]
  - Weight decreased [Unknown]
  - Cardiac disorder [Unknown]
